FAERS Safety Report 6098573-9 (Version None)
Quarter: 2009Q1

REPORT INFORMATION
  Report Type: 
  Country: None (occurrence: None)
  Receive Date: 20090302
  Receipt Date: 20090223
  Transmission Date: 20090719
  Serious: Yes (Hospitalization)
  Sender: FDA-Public Use
  Company Number: FR-ASTRAZENECA-2009CG00426

PATIENT
  Age: 55 Year
  Sex: Male

DRUGS (4)
  1. NEXIUM [Suspect]
     Route: 048
  2. CRESTOR [Concomitant]
     Route: 048
  3. EZETROL [Concomitant]
     Route: 048
  4. LOPERAMIDE HCL [Concomitant]
     Route: 048

REACTIONS (8)
  - ARTHRALGIA [None]
  - ELECTROCARDIOGRAM T WAVE AMPLITUDE DECREASED [None]
  - HYPOCALCAEMIA [None]
  - HYPOKALAEMIA [None]
  - HYPOMAGNESAEMIA [None]
  - HYPOREFLEXIA [None]
  - MYALGIA [None]
  - PARAESTHESIA [None]
